FAERS Safety Report 6015151-8 (Version None)
Quarter: 2008Q4

REPORT INFORMATION
  Report Type: 
  Country: None (occurrence: None)
  Receive Date: 20081219
  Receipt Date: 20081219
  Transmission Date: 20090506
  Serious: Yes (Other)
  Sender: FDA-Public Use
  Company Number: None

PATIENT

DRUGS (1)
  1. ACETAMINOPHEN AND CODEINE PHOSPHATE [Suspect]
     Indication: TONSILLECTOMY
     Dosage: 7ML Q 4 HRS PO
     Route: 048
     Dates: start: 20080326, end: 20080326

REACTIONS (3)
  - FATIGUE [None]
  - HYPOAESTHESIA ORAL [None]
  - LIP DISCOLOURATION [None]
